FAERS Safety Report 7249129-3 (Version None)
Quarter: 2011Q1

REPORT INFORMATION
  Report Type: 
  Country: None (occurrence: None)
  Receive Date: 20110128
  Receipt Date: 20101126
  Transmission Date: 20110831
  Serious: Yes (Hospitalization)
  Sender: FDA-Public Use
  Company Number: DE-BAYER-2010-001433

PATIENT
  Age: 29 Year
  Sex: Female

DRUGS (7)
  1. GLUCOSE [Concomitant]
     Dosage: DAILY DOSE 1000 ML
     Dates: start: 20101029, end: 20101102
  2. AZATHIOPRINE [Suspect]
     Indication: CROHN'S DISEASE
     Dosage: 150 MG, QD
     Route: 048
     Dates: start: 20101006, end: 20101028
  3. JONOSTERIL [Concomitant]
     Dosage: 1500 ML, UNK
     Dates: start: 20101029
  4. CLONT [Concomitant]
     Dosage: 500 MG, TID
     Dates: start: 20101029, end: 20101104
  5. CIPROFLOXACIN BETAIN [Suspect]
     Indication: ANAL ABSCESS
     Dosage: UNK
     Dates: start: 20100806, end: 20100819
  6. PANTOPRAZOLE [Concomitant]
  7. METOCLOPRAMIDE HYDROCHLORIDE [Concomitant]
     Dosage: UNK UNK, TID
     Dates: start: 20101029, end: 20101102

REACTIONS (5)
  - GASTROENTERITIS CLOSTRIDIAL [None]
  - ABDOMINAL PAIN UPPER [None]
  - NAUSEA [None]
  - VOMITING [None]
  - ABNORMAL FAECES [None]
